FAERS Safety Report 9003369 (Version 2)
Quarter: 2013Q1

REPORT INFORMATION
  Report Type: Spontaneous
  Country: US (occurrence: US)
  Receive Date: 20130108
  Receipt Date: 20130111
  Transmission Date: 20140127
  Serious: No
  Sender: FDA-Public Use
  Company Number: US-ASTRAZENECA-2012SE91571

PATIENT
  Age: 71 Year
  Sex: Female

DRUGS (1)
  1. CAPRELSA [Suspect]
     Indication: THYROID CANCER
     Route: 048
     Dates: start: 20121121

REACTIONS (8)
  - Arthralgia [Unknown]
  - Dyspnoea [Unknown]
  - Sinus disorder [Unknown]
  - Dry skin [Unknown]
  - Headache [Unknown]
  - Blood pressure increased [Unknown]
  - Epistaxis [Unknown]
  - Pruritus [Unknown]
